FAERS Safety Report 12986301 (Version 1)
Quarter: 2016Q4

REPORT INFORMATION
  Report Type: Report from Study
  Country: US (occurrence: US)
  Receive Date: 20161130
  Receipt Date: 20161130
  Transmission Date: 20170207
  Serious: Yes (Hospitalization, Other)
  Sender: FDA-Public Use
  Company Number: US-CLINIGEN GROUP PLC/ CLINIGEN HEALTHCARE LTD-E2B_00001052

PATIENT
  Age: 58 Year
  Sex: Female
  Weight: 59 kg

DRUGS (12)
  1. COMPAZINE [Concomitant]
     Active Substance: PROCHLORPERAZINE MALEATE
     Indication: PROPHYLAXIS OF NAUSEA AND VOMITING
     Dates: start: 20030729, end: 20030902
  2. SEREVENT DISKUS [Concomitant]
     Active Substance: SALMETEROL XINAFOATE
     Indication: ASTHMA
  3. GLUTAMINE [Concomitant]
     Active Substance: GLUTAMINE
     Dates: start: 20030729, end: 20031010
  4. CARBOPLATIN. [Concomitant]
     Active Substance: CARBOPLATIN
     Indication: CHEMOTHERAPY
     Dates: start: 20030829, end: 20040616
  5. ETHYOL [Suspect]
     Active Substance: AMIFOSTINE
     Route: 058
     Dates: start: 20030814, end: 20030902
  6. CIPRO [Concomitant]
     Active Substance: CIPROFLOXACIN HYDROCHLORIDE
     Dates: start: 20030828
  7. KYTRIL [Concomitant]
     Active Substance: GRANISETRON HYDROCHLORIDE
     Indication: PROPHYLAXIS OF NAUSEA AND VOMITING
     Dates: start: 20030729, end: 20030902
  8. TAXOTERE [Concomitant]
     Active Substance: DOCETAXEL
     Indication: CHEMOTHERAPY
     Dates: start: 20030829, end: 20040616
  9. ATROVENT [Concomitant]
     Active Substance: IPRATROPIUM BROMIDE
     Indication: ASTHMA
  10. RADIATION THERAPY [Concomitant]
     Active Substance: RADIATION THERAPY
     Indication: RADIOTHERAPY
  11. ETHYOL [Suspect]
     Active Substance: AMIFOSTINE
     Indication: RADIOTHERAPY
     Route: 058
     Dates: start: 20030814, end: 20030902
  12. VITAMIN B6 [Concomitant]
     Active Substance: PYRIDOXINE HYDROCHLORIDE
     Dates: start: 20030729, end: 20031010

REACTIONS (13)
  - Dyspnoea [Unknown]
  - Pyrexia [Recovered/Resolved]
  - Bacterial infection [Unknown]
  - Oxygen consumption [Unknown]
  - Myopathy [Unknown]
  - Rash [Recovered/Resolved]
  - Muscular weakness [Unknown]
  - Hypersensitivity vasculitis [Unknown]
  - Chronic obstructive pulmonary disease [Unknown]
  - Myalgia [Unknown]
  - Vomiting [Recovered/Resolved]
  - Nausea [Recovered/Resolved]
  - Heart rate increased [Unknown]

NARRATIVE: CASE EVENT DATE: 20030815
